FAERS Safety Report 5574331-6 (Version None)
Quarter: 2007Q4

REPORT INFORMATION
  Report Type: 
  Country: None (occurrence: None)
  Receive Date: 20071221
  Receipt Date: 20071213
  Transmission Date: 20080405
  Serious: Yes (Hospitalization)
  Sender: FDA-Public Use
  Company Number: 021631

PATIENT
  Sex: Female

DRUGS (2)
  1. ESTRADIOL [Suspect]
     Indication: PARATHYROID TUMOUR
     Dosage: ORAL
     Route: 048
     Dates: start: 20010101, end: 20010101
  2. PROVERA [Concomitant]

REACTIONS (2)
  - FLUID RETENTION [None]
  - SWELLING [None]
